FAERS Safety Report 19412308 (Version 1)
Quarter: 2021Q2

REPORT INFORMATION
  Report Type: Report from Study
  Country: US (occurrence: US)
  Receive Date: 20210614
  Receipt Date: 20210614
  Transmission Date: 20210717
  Serious: Yes (Hospitalization)
  Sender: FDA-Public Use
  Company Number: US-B.I. PHARMACEUTICALS,INC./RIDGEFIELD-2021-BI-099521

PATIENT
  Age: 84 Year
  Sex: Female

DRUGS (2)
  1. OFEV [Suspect]
     Active Substance: NINTEDANIB
     Dosage: OFEV 150 MG TWICE DAILY
     Route: 048
     Dates: start: 20210304
  2. OFEV [Suspect]
     Active Substance: NINTEDANIB
     Indication: IDIOPATHIC PULMONARY FIBROSIS
     Dosage: 150MG BID
     Route: 048
     Dates: start: 20210304

REACTIONS (8)
  - Anaemia [Recovering/Resolving]
  - Dyspnoea [Recovering/Resolving]
  - Dysphonia [Not Recovered/Not Resolved]
  - Diverticulum [Not Recovered/Not Resolved]
  - Odynophagia [Not Recovered/Not Resolved]
  - Weight decreased [Unknown]
  - Rectal haemorrhage [Recovering/Resolving]
  - Diarrhoea [Not Recovered/Not Resolved]

NARRATIVE: CASE EVENT DATE: 20210510
